FAERS Safety Report 13577520 (Version 1)
Quarter: 2017Q2

REPORT INFORMATION
  Report Type: Spontaneous
  Country: US (occurrence: US)
  Receive Date: 20170524
  Receipt Date: 20170524
  Transmission Date: 20170830
  Serious: No
  Sender: FDA-Public Use
  Company Number: None

PATIENT
  Age: 87 Year
  Sex: Male

DRUGS (1)
  1. TACROLIMUS CAP 0.5MG ACCORD HEALTHCARE [Suspect]
     Active Substance: TACROLIMUS

REACTIONS (3)
  - Therapy change [None]
  - Skin cancer [None]
  - Laboratory test abnormal [None]

NARRATIVE: CASE EVENT DATE: 20170501
